FAERS Safety Report 23500711 (Version 3)
Quarter: 2024Q3

REPORT INFORMATION
  Report Type: Report from Study
  Country: US (occurrence: US)
  Receive Date: 20240208
  Receipt Date: 20240721
  Transmission Date: 20241016
  Serious: Yes (Other)
  Sender: BAYER
  Company Number: US-BAYER-2024A020979

PATIENT
  Age: 64 Year
  Sex: Male

DRUGS (2)
  1. NUBEQA [Suspect]
     Active Substance: DAROLUTAMIDE
     Indication: Prostate cancer
     Dosage: 600 MG, BID
     Route: 048
     Dates: start: 20231106, end: 20240621
  2. NUBEQA [Suspect]
     Active Substance: DAROLUTAMIDE
     Indication: Prostate cancer
     Dosage: UNK

REACTIONS (6)
  - Haemoptysis [Not Recovered/Not Resolved]
  - Gait inability [Not Recovered/Not Resolved]
  - Dyspnoea [Recovering/Resolving]
  - Peripheral swelling [Recovering/Resolving]
  - Asthenia [Not Recovered/Not Resolved]
  - Dizziness [Unknown]
